FAERS Safety Report 14508356 (Version 2)
Quarter: 2018Q1

REPORT INFORMATION
  Report Type: Spontaneous
  Country: US (occurrence: US)
  Receive Date: 20180209
  Receipt Date: 20180220
  Transmission Date: 20180509
  Serious: Yes (Hospitalization)
  Sender: FDA-Public Use
  Company Number: US-ALVOGEN-2018-ALVOGEN-095089

PATIENT
  Age: 39 Year
  Sex: Female

DRUGS (4)
  1. DIPHENHYDRAMINE. [Suspect]
     Active Substance: DIPHENHYDRAMINE
     Indication: BACK PAIN
     Dosage: COUPLE OF DIPHENHYDRAMINE PILLS, UNKNOWN DOSAGE
  2. OXYCODONE HYDROCHLORIDE. [Suspect]
     Active Substance: OXYCODONE HYDROCHLORIDE
     Indication: BACK PAIN
     Dosage: DOUBLE HER PRESCRIBED DOSE ; IN TOTAL
  3. ALPRAZOLAM. [Suspect]
     Active Substance: ALPRAZOLAM
     Indication: BACK PAIN
     Dosage: IN TOTAL
  4. LORAZEPAM. [Suspect]
     Active Substance: LORAZEPAM
     Indication: BACK PAIN

REACTIONS (3)
  - Overdose [Unknown]
  - Loss of consciousness [Recovered/Resolved]
  - Compartment syndrome [Recovered/Resolved]
